FAERS Safety Report 8224432-9 (Version None)
Quarter: 2012Q1

REPORT INFORMATION
  Report Type: 
  Country: None (occurrence: None)
  Receive Date: 20120321
  Receipt Date: 20120313
  Transmission Date: 20120608
  Serious: Yes (Hospitalization, Other)
  Sender: FDA-Public Use
  Company Number: US-CELGENEUS-163-21880-12031613

PATIENT
  Sex: Female
  Weight: 81.72 kg

DRUGS (8)
  1. POTASSIUM [Concomitant]
     Dosage: 8 MILLIEQUIVALENTS
     Route: 065
  2. FERROUS SULFATE TAB [Concomitant]
     Dosage: 325 MILLIGRAM
     Route: 065
  3. TRAMADOL HCL [Concomitant]
     Indication: PAIN
     Dosage: 50 MILLIGRAM
     Route: 065
  4. LEVOTHROID [Concomitant]
     Indication: THYROID DISORDER
     Dosage: 88
     Route: 065
  5. METOPROLOL SUCCINATE [Concomitant]
     Indication: BLOOD PRESSURE
     Dosage: 25
     Route: 065
  6. WARFARIN SODIUM [Concomitant]
     Dosage: 5 MILLIGRAM
     Route: 065
  7. REVLIMID [Suspect]
     Indication: MULTIPLE MYELOMA
     Dosage: 5 MILLIGRAM
     Route: 048
     Dates: start: 20110701
  8. FUROSEMIDE [Concomitant]
     Dosage: 40 MILLIGRAM
     Route: 065

REACTIONS (2)
  - HAEMORRHAGE [None]
  - OEDEMA PERIPHERAL [None]
